FAERS Safety Report 8583993 (Version 6)
Quarter: 2013Q2

REPORT INFORMATION
  Report Type: Report from Study
  Country: JP (occurrence: JP)
  Receive Date: 20120529
  Receipt Date: 20130401
  Transmission Date: 20140414
  Serious: Yes (Other)
  Sender: FDA-Public Use
  Company Number: JP-VERTEX PHARMACEUTICAL INC.-AE-2012-007679

PATIENT
  Age: 69 Year
  Sex: Female

DRUGS (12)
  1. TELAPREVIR [Suspect]
     Indication: CHRONIC HEPATITIS C
     Dosage: 2250 MG, QD
     Route: 048
     Dates: start: 20120207, end: 20120322
  2. TELAPREVIR [Suspect]
     Dosage: 1500 MG, QD
     Route: 048
     Dates: start: 20120323, end: 20120504
  3. PEGINTERFERON ALFA-2B [Suspect]
     Indication: CHRONIC HEPATITIS C
     Dosage: 80 ?G, QW
     Route: 058
     Dates: start: 20120207, end: 20120221
  4. PEGINTERFERON ALFA-2B [Suspect]
     Dosage: 50 ?G, QW
     Route: 058
     Dates: start: 20120228, end: 20120727
  5. RIBAVIRIN [Suspect]
     Indication: CHRONIC HEPATITIS C
     Dosage: 600 MG, QD
     Route: 048
     Dates: start: 20120207, end: 20120220
  6. RIBAVIRIN [Suspect]
     Dosage: 400 MG, QD
     Route: 048
     Dates: start: 20120221, end: 20120305
  7. RIBAVIRIN [Suspect]
     Dosage: 200 MG, QD
     Route: 048
     Dates: start: 20120306, end: 20120628
  8. RIBAVIRIN [Suspect]
     Dosage: 400 MG, QD
     Route: 048
     Dates: start: 20120629, end: 20120726
  9. URSO [Concomitant]
     Route: 048
     Dates: end: 20120420
  10. GASTER D [Concomitant]
     Dosage: 40 MG, QD
     Route: 048
  11. MUCOSTA [Concomitant]
     Dosage: 300 MG, QD
     Route: 048
     Dates: end: 20120330
  12. MARZULENE-S [Concomitant]
     Dosage: 2.01 G, QD
     Route: 048
     Dates: end: 20120330

REACTIONS (8)
  - White blood cell count decreased [Recovered/Resolved]
  - Haemoglobin decreased [Recovered/Resolved]
  - Pyrexia [None]
  - Blood creatinine increased [None]
  - Depressive symptom [None]
  - Malaise [None]
  - Drug eruption [None]
  - Pruritus [None]
